FAERS Safety Report 21618635 (Version 3)
Quarter: 2023Q1

REPORT INFORMATION
  Report Type: Spontaneous
  Country: DE (occurrence: DE)
  Receive Date: 20221119
  Receipt Date: 20230213
  Transmission Date: 20230418
  Serious: Yes (Hospitalization, Disabling, Other)
  Sender: FDA-Public Use
  Company Number: DE-009507513-2211DEU005454

PATIENT
  Sex: Female
  Weight: 62 kg

DRUGS (3)
  1. KEYTRUDA [Suspect]
     Active Substance: PEMBROLIZUMAB
     Indication: Ovarian cancer
     Dosage: UNK
     Dates: start: 202112, end: 20220816
  2. DOXORUBICIN HYDROCHLORIDE [Concomitant]
     Active Substance: DOXORUBICIN HYDROCHLORIDE
     Dosage: UNK
     Dates: start: 202105, end: 202110
  3. CARBOPLATIN [Concomitant]
     Active Substance: CARBOPLATIN
     Dosage: UNK
     Dates: start: 202105, end: 202110

REACTIONS (13)
  - Pericardial effusion [Unknown]
  - Generalised oedema [Recovered/Resolved]
  - Malignant neoplasm progression [Unknown]
  - Adverse event [Unknown]
  - Immune-mediated adverse reaction [Unknown]
  - Pleural effusion [Unknown]
  - Carpal tunnel syndrome [Unknown]
  - Joint effusion [Unknown]
  - Weight decreased [Unknown]
  - Vasculitis [Unknown]
  - Arthritis [Unknown]
  - Arthralgia [Unknown]
  - Product use in unapproved indication [Unknown]

NARRATIVE: CASE EVENT DATE: 20211201
